FAERS Safety Report 6242791-3 (Version None)
Quarter: 2009Q2

REPORT INFORMATION
  Report Type: 
  Country: None (occurrence: None)
  Receive Date: 20090624
  Receipt Date: 20090622
  Transmission Date: 20091009
  Serious: Yes (Other)
  Sender: FDA-Public Use
  Company Number: US-ROXANE LABORATORIES, INC.-2009-RO-00609RO

PATIENT
  Age: 79 Year
  Sex: Female

DRUGS (5)
  1. GALANTAMINE HYDROBROMIDE [Suspect]
     Indication: DEMENTIA ALZHEIMER'S TYPE
  2. METOPROLOL TARTRATE [Suspect]
     Indication: HYPERTENSION
  3. ACETAMINOPHEN [Suspect]
     Indication: OSTEOARTHRITIS
  4. MULTI-VITAMIN [Suspect]
  5. PREDNISONE [Concomitant]
     Indication: PEMPHIGOID
     Dosage: 40 MG

REACTIONS (1)
  - PEMPHIGOID [None]
